FAERS Safety Report 9387343 (Version 1)
Quarter: 2013Q3

REPORT INFORMATION
  Report Type: Spontaneous
  Country: US (occurrence: None)
  Receive Date: 20130703
  Receipt Date: 20130703
  Transmission Date: 20140515
  Serious: Yes (Life-Threatening)
  Sender: FDA-Public Use
  Company Number: None

PATIENT
  Age: 55 Year
  Sex: Female
  Weight: 104.33 kg

DRUGS (1)
  1. TRAMADAL HYDROCHLORIDE AND ACETAMINOPHEN [Suspect]
     Indication: KNEE OPERATION
     Dosage: 37.5-325MG 1TAB. 4-6HRS AS NEEDED ORAL
     Dates: start: 20130504, end: 20130506

REACTIONS (4)
  - Musculoskeletal stiffness [None]
  - Hand deformity [None]
  - Stomatitis [None]
  - Drug hypersensitivity [None]
